FAERS Safety Report 23221036 (Version 1)
Quarter: 2023Q4

REPORT INFORMATION
  Report Type: Spontaneous
  Country: US (occurrence: US)
  Receive Date: 20231123
  Receipt Date: 20231123
  Transmission Date: 20240109
  Serious: No
  Sender: FDA-Public Use
  Company Number: US-CIPLA LTD.-2023US02811

PATIENT

DRUGS (3)
  1. GABAPENTIN [Suspect]
     Active Substance: GABAPENTIN
     Indication: Sleep disorder
     Dosage: 100 MILLIGRAM, QD (PRESCRIBED TO TAKE ONE CAPSULE FIRST NIGHT)
     Route: 048
     Dates: start: 20230415, end: 202304
  2. GABAPENTIN [Suspect]
     Active Substance: GABAPENTIN
     Dosage: 200 MILLIGRAM, QD (THEN INCREASE THE DOSAGE TO TWO CAPSULES THE SECOND NIGHT)
     Route: 048
     Dates: start: 202304, end: 202304
  3. GABAPENTIN [Suspect]
     Active Substance: GABAPENTIN
     Dosage: 300 MILLIGRAM, QD (LATER THREE CAPSULES THE THIRD NIGHT UP TO A TOTAL DOSE OF 300 MG)
     Route: 048
     Dates: start: 202304, end: 20230428

REACTIONS (12)
  - Palpitations [Recovered/Resolved]
  - Discomfort [Recovered/Resolved]
  - Hypoaesthesia [Recovered/Resolved]
  - Abdominal discomfort [Recovered/Resolved]
  - Eye pain [Recovered/Resolved]
  - Neck pain [Recovered/Resolved]
  - Condition aggravated [Recovered/Resolved]
  - Off label use [Unknown]
  - Headache [Recovered/Resolved]
  - Pain [Recovered/Resolved]
  - Malaise [Recovered/Resolved]
  - Dizziness [Recovered/Resolved]

NARRATIVE: CASE EVENT DATE: 20230415
